FAERS Safety Report 11186365 (Version 1)
Quarter: 2015Q2

REPORT INFORMATION
  Report Type: Spontaneous
  Country: DE (occurrence: DE)
  Receive Date: 20150612
  Receipt Date: 20150612
  Transmission Date: 20150821
  Serious: Yes (Hospitalization, Other)
  Sender: FDA-Public Use
  Company Number: DE-AMGEN-DEUSP2015043764

PATIENT
  Age: 74 Year
  Sex: Female

DRUGS (3)
  1. PROLIA [Suspect]
     Active Substance: DENOSUMAB
     Indication: DIALYSIS
     Dosage: 60 MG, UNK
     Route: 058
     Dates: start: 20150422
  2. PROLIA [Suspect]
     Active Substance: DENOSUMAB
     Indication: HYPERPARATHYROIDISM
  3. PROLIA [Suspect]
     Active Substance: DENOSUMAB
     Indication: BONE METABOLISM DISORDER

REACTIONS (5)
  - Lymphocytosis [Unknown]
  - Viral titre increased [Unknown]
  - Post polio syndrome [Unknown]
  - Lymphoproliferative disorder [Unknown]
  - Non-Hodgkin^s lymphoma stage IV [Not Recovered/Not Resolved]

NARRATIVE: CASE EVENT DATE: 20150427
